FAERS Safety Report 14471371 (Version 1)
Quarter: 2018Q1

REPORT INFORMATION
  Report Type: Spontaneous
  Country: US (occurrence: US)
  Receive Date: 20180130
  Receipt Date: 20180130
  Transmission Date: 20180509
  Serious: Yes (Other)
  Sender: FDA-Public Use
  Company Number: None

PATIENT
  Sex: Male
  Weight: 16.2 kg

DRUGS (7)
  1. VIGABATRIN. [Suspect]
     Active Substance: VIGABATRIN
     Indication: INFANTILE SPASMS
     Dosage: ?          QUANTITY:1 PACKET;?
     Route: 048
     Dates: start: 20171218, end: 20180118
  2. SABRIL [Concomitant]
     Active Substance: VIGABATRIN
  3. KEPPRA [Concomitant]
     Active Substance: LEVETIRACETAM
  4. LAMICTAL [Concomitant]
     Active Substance: LAMOTRIGINE
  5. CALCIUM [Concomitant]
     Active Substance: CALCIUM
  6. DAILY VITAMIN [Concomitant]
     Active Substance: VITAMINS
  7. VITAMIN B12 [Concomitant]
     Active Substance: CYANOCOBALAMIN

REACTIONS (3)
  - Muscle spasms [None]
  - Product substitution issue [None]
  - Seizure [None]

NARRATIVE: CASE EVENT DATE: 20171228
